FAERS Safety Report 5723094-X (Version None)
Quarter: 2008Q2

REPORT INFORMATION
  Report Type: 
  Country: None (occurrence: None)
  Receive Date: 20080428
  Receipt Date: 20080415
  Transmission Date: 20081010
  Serious: Yes (Other)
  Sender: FDA-Public Use
  Company Number: 232697J08USA

PATIENT
  Age: 57 Year
  Sex: Female
  Weight: 41.7309 kg

DRUGS (4)
  1. REBIF [Suspect]
     Indication: MULTIPLE SCLEROSIS
     Dosage: 44 MCG, 3 IN 1 WEEKS, SUBCUTANEOUS
     Route: 058
     Dates: start: 20070314, end: 20080111
  2. FOSAMAX [Suspect]
     Indication: MENOPAUSE
     Dosage: NOT REPORTED, 1 IN 1 WEEKS, ORAL
     Route: 048
     Dates: start: 20050601, end: 20080330
  3. LEXAPRO [Concomitant]
  4. ENABLEX [Concomitant]

REACTIONS (1)
  - PROTEIN URINE [None]
